FAERS Safety Report 9958382 (Version 2)
Quarter: 2014Q1

REPORT INFORMATION
  Report Type: Report from Study
  Country: KR (occurrence: KR)
  Receive Date: 20140305
  Receipt Date: 20140311
  Transmission Date: 20141002
  Serious: Yes (Other)
  Sender: FDA-Public Use
  Company Number: KR-ROCHE-1359313

PATIENT
  Sex: Male

DRUGS (2)
  1. LUCENTIS [Suspect]
     Indication: AGE-RELATED MACULAR DEGENERATION
     Dosage: LEFT EYE
     Route: 050
     Dates: start: 20130322
  2. LUCENTIS [Suspect]
     Dosage: RIGHT EYE
     Route: 050

REACTIONS (3)
  - Age-related macular degeneration [Recovering/Resolving]
  - Visual acuity reduced [Unknown]
  - Visual impairment [Unknown]
